FAERS Safety Report 12839457 (Version 2)
Quarter: 2016Q4

REPORT INFORMATION
  Report Type: Spontaneous
  Country: US (occurrence: US)
  Receive Date: 20161012
  Receipt Date: 20161109
  Transmission Date: 20170207
  Serious: No
  Sender: FDA-Public Use
  Company Number: US-INCYTE CORPORATION-2016IN006232

PATIENT
  Sex: Female

DRUGS (6)
  1. DIGOXIN. [Concomitant]
     Active Substance: DIGOXIN
     Indication: PRODUCT USED FOR UNKNOWN INDICATION
  2. JAKAFI [Suspect]
     Active Substance: RUXOLITINIB
     Dosage: 10 MG Q AM, 5 MG Q PM
  3. JAKAFI [Suspect]
     Active Substance: RUXOLITINIB
     Dosage: 10MG (2 X 5MG), BID
     Route: 048
  4. BISOPROLOL [Concomitant]
     Active Substance: BISOPROLOL
     Indication: PRODUCT USED FOR UNKNOWN INDICATION
  5. JAKAFI [Suspect]
     Active Substance: RUXOLITINIB
     Indication: MYELOFIBROSIS
     Dosage: 5 MG, BID
     Dates: start: 20160903
  6. LORAZEPAM. [Concomitant]
     Active Substance: LORAZEPAM
     Indication: PRODUCT USED FOR UNKNOWN INDICATION

REACTIONS (6)
  - Back pain [Recovering/Resolving]
  - Bleeding time prolonged [Unknown]
  - Splenomegaly [Recovering/Resolving]
  - Asthenia [Unknown]
  - Dry mouth [Unknown]
  - Fatigue [Unknown]
